FAERS Safety Report 13597111 (Version 1)
Quarter: 2017Q2

REPORT INFORMATION
  Report Type: Report from Study
  Country: FR (occurrence: FR)
  Receive Date: 20170531
  Receipt Date: 20170531
  Transmission Date: 20170830
  Serious: Yes (Death, Life-Threatening, Hospitalization)
  Sender: FDA-Public Use
  Company Number: FR-ROCHE-1941932

PATIENT
  Sex: Male

DRUGS (8)
  1. SOFOSBUVIR [Suspect]
     Active Substance: SOFOSBUVIR
     Indication: HEPATITIS C
     Route: 065
  2. DACLATASVIR. [Suspect]
     Active Substance: DACLATASVIR
     Indication: HEPATITIS C
     Route: 065
  3. RIBAVIRIN. [Suspect]
     Active Substance: RIBAVIRIN
     Indication: HEPATIC CIRRHOSIS
     Dosage: 1000-1200 MG
     Route: 065
  4. SIMEPREVIR [Suspect]
     Active Substance: SIMEPREVIR
     Indication: HEPATIC CIRRHOSIS
     Route: 065
  5. RIBAVIRIN. [Suspect]
     Active Substance: RIBAVIRIN
     Indication: HEPATITIS C
     Dosage: 1000-1200 MG
     Route: 065
  6. SOFOSBUVIR [Suspect]
     Active Substance: SOFOSBUVIR
     Indication: HEPATIC CIRRHOSIS
     Route: 065
  7. DACLATASVIR. [Suspect]
     Active Substance: DACLATASVIR
     Indication: HEPATIC CIRRHOSIS
     Route: 065
  8. SIMEPREVIR [Suspect]
     Active Substance: SIMEPREVIR
     Indication: HEPATITIS C
     Route: 065

REACTIONS (7)
  - Sepsis [Fatal]
  - Renal failure [Unknown]
  - Peritonitis bacterial [Unknown]
  - Ascites [Unknown]
  - Mitochondrial toxicity [Unknown]
  - Acute on chronic liver failure [Unknown]
  - Pancreatitis acute [Unknown]
